FAERS Safety Report 17693200 (Version 2)
Quarter: 2020Q2

REPORT INFORMATION
  Report Type: Spontaneous
  Country: US (occurrence: US)
  Receive Date: 20200422
  Receipt Date: 20200515
  Transmission Date: 20200714
  Serious: Yes (Death)
  Sender: FDA-Public Use
  Company Number: US-WEST THERAPEUTIC DEVELOPMENT-2020WTD00009

PATIENT
  Sex: Male
  Weight: 65.76 kg

DRUGS (1)
  1. SUBSYS [Suspect]
     Active Substance: FENTANYL
     Indication: BREAKTHROUGH PAIN
     Dosage: 200 ?G, 2X/DAY (EVERY 12 HOURS)
     Route: 060
     Dates: start: 201805

REACTIONS (2)
  - Product use complaint [Recovered/Resolved]
  - Death [Fatal]
